FAERS Safety Report 8912760 (Version 1)
Quarter: 2012Q4

REPORT INFORMATION
  Report Type: 
  Country: GB (occurrence: GB)
  Receive Date: 20121116
  Receipt Date: 20121116
  Transmission Date: 20130627
  Serious: Yes (Hospitalization)
  Sender: FDA-Public Use
  Company Number: GB-ROCHE-1155475

PATIENT
  Age: 62 Year
  Sex: Female
  Weight: 73 kg

DRUGS (6)
  1. ROACTEMRA [Suspect]
     Indication: RHEUMATOID ARTHRITIS
     Route: 042
     Dates: start: 20120830, end: 20120927
  2. ALENDRONATE [Concomitant]
     Route: 048
  3. CETIRIZINE [Concomitant]
     Route: 048
  4. LEFLUNOMIDE [Concomitant]
     Route: 048
     Dates: start: 2009
  5. OMEPRAZOLE [Concomitant]
     Route: 048
  6. PREDNISOLONE [Concomitant]
     Route: 048

REACTIONS (4)
  - Haemorrhage [Recovered/Resolved]
  - Diverticulum [Recovered/Resolved]
  - Haemorrhoids [Recovered/Resolved]
  - Melaena [Recovered/Resolved]
